FAERS Safety Report 16833567 (Version 1)
Quarter: 2019Q3

REPORT INFORMATION
  Report Type: Spontaneous
  Country: DK (occurrence: DK)
  Receive Date: 20190920
  Receipt Date: 20190920
  Transmission Date: 20191005
  Serious: Yes (Death)
  Sender: FDA-Public Use
  Company Number: DK-ENDO PHARMACEUTICALS INC-2019-108048

PATIENT
  Age: 79 Year
  Sex: Female

DRUGS (1)
  1. RHEUMATREX [Suspect]
     Active Substance: METHOTREXATE SODIUM
     Indication: RHEUMATOID ARTHRITIS
     Dosage: 20 MG, WEEKLY (FOR 22 YEARS)
     Route: 065

REACTIONS (1)
  - Urethral melanoma metastatic [Fatal]
